FAERS Safety Report 14799139 (Version 3)
Quarter: 2018Q2

REPORT INFORMATION
  Report Type: Report from Study
  Country: DE (occurrence: DE)
  Receive Date: 20180424
  Receipt Date: 20180622
  Transmission Date: 20180711
  Serious: Yes (Other)
  Sender: FDA-Public Use
  Company Number: PHHY2018DE050743

PATIENT
  Sex: Female
  Weight: 65 kg

DRUGS (3)
  1. KISQALI [Suspect]
     Active Substance: RIBOCICLIB
     Dosage: 400 MG, QD (FOR 3 WEEKS)
     Route: 048
     Dates: start: 20180307
  2. LETROZOL ABZ [Suspect]
     Active Substance: LETROZOLE
     Indication: BREAST CANCER METASTATIC
     Dosage: 2.5 MG, QD
     Route: 048
     Dates: start: 20171007
  3. KISQALI [Suspect]
     Active Substance: RIBOCICLIB
     Indication: BREAST CANCER METASTATIC
     Dosage: 600 MG, (FOR 3 WEEKS)
     Route: 048
     Dates: start: 20171103, end: 20180306

REACTIONS (11)
  - Nasopharyngitis [Recovered/Resolved]
  - Anxiety disorder [Not Recovered/Not Resolved]
  - Cough [Unknown]
  - Panic attack [Not Recovered/Not Resolved]
  - Dyspnoea [Not Recovered/Not Resolved]
  - Rales [Not Recovered/Not Resolved]
  - Chills [Unknown]
  - Epidermolysis [Recovered/Resolved]
  - Leukopenia [Recovered/Resolved]
  - Influenza [Recovering/Resolving]
  - Pyrexia [Unknown]

NARRATIVE: CASE EVENT DATE: 201712
